FAERS Safety Report 24061146 (Version 1)
Quarter: 2024Q3

REPORT INFORMATION
  Report Type: Spontaneous
  Country: US (occurrence: None)
  Receive Date: 20240705
  Receipt Date: 20240705
  Transmission Date: 20241017
  Serious: Yes (Other)
  Sender: Public
  Company Number: None

PATIENT
  Age: 65 Year
  Sex: Female

DRUGS (1)
  1. OTEZLA [Suspect]
     Active Substance: APREMILAST
     Indication: Psoriatic arthropathy
     Dosage: OTHER STRENGTH : 10/20/30;?FREQUENCY : TWICE A DAY;?
     Dates: start: 20240610, end: 20240615

REACTIONS (8)
  - Headache [None]
  - Depression [None]
  - Anxiety [None]
  - Self-injurious ideation [None]
  - Bowel movement irregularity [None]
  - Diarrhoea [None]
  - Drug intolerance [None]
  - Impaired work ability [None]

NARRATIVE: CASE EVENT DATE: 20240612
